FAERS Safety Report 5722699-X (Version None)
Quarter: 2008Q2

REPORT INFORMATION
  Report Type: 
  Country: None (occurrence: None)
  Receive Date: 20080429
  Receipt Date: 20071112
  Transmission Date: 20081010
  Serious: No
  Sender: FDA-Public Use
  Company Number: US-ASTRAZENECA-2007UW26241

PATIENT
  Age: 67 Year
  Sex: Female
  Weight: 50.8 kg

DRUGS (5)
  1. NEXIUM [Suspect]
     Indication: HELICOBACTER GASTRITIS
     Route: 048
     Dates: start: 20070501
  2. NEXIUM [Suspect]
     Indication: HIATUS HERNIA
     Route: 048
     Dates: start: 20070501
  3. BENICAR [Concomitant]
  4. ADVAIR HFA [Concomitant]
  5. NASONEX [Concomitant]

REACTIONS (3)
  - CHOKING [None]
  - ODYNOPHAGIA [None]
  - VOMITING [None]
